FAERS Safety Report 5676556-8 (Version None)
Quarter: 2008Q1

REPORT INFORMATION
  Report Type: 
  Country: None (occurrence: None)
  Receive Date: 20080321
  Receipt Date: 20080321
  Transmission Date: 20080703
  Serious: Yes (Death)
  Sender: FDA-Public Use
  Company Number: None

PATIENT
  Sex: Male
  Weight: 119 kg

DRUGS (1)
  1. COLCHICINE 0.5 MG/ML X 2 ML (BEDFORD) [Suspect]
     Indication: GOUT
     Dosage: 0.5 MG Q 6 HOURS IV
     Route: 042
     Dates: start: 20080123, end: 20080128

REACTIONS (1)
  - NO ADVERSE EVENT [None]
